FAERS Safety Report 22828579 (Version 5)
Quarter: 2024Q3

REPORT INFORMATION
  Report Type: Report from Study
  Country: CA (occurrence: CA)
  Receive Date: 20230816
  Receipt Date: 20240712
  Transmission Date: 20241017
  Serious: Yes (Death, Other)
  Sender: ABBVIE
  Company Number: CA-JNJFOC-20230823489

PATIENT
  Sex: Male

DRUGS (3)
  1. IMBRUVICA [Suspect]
     Active Substance: IBRUTINIB
     Indication: Chronic lymphocytic leukaemia
     Route: 048
  2. IMBRUVICA [Suspect]
     Active Substance: IBRUTINIB
     Indication: Chronic lymphocytic leukaemia
     Route: 048
  3. OZEMPIC [Suspect]
     Active Substance: SEMAGLUTIDE
     Indication: Diabetes mellitus
     Route: 065
     Dates: start: 202211, end: 202303

REACTIONS (7)
  - Death [Fatal]
  - Eye inflammation [Unknown]
  - Renal impairment [Unknown]
  - Red blood cell count decreased [Unknown]
  - Cataract [Fatal]
  - Renal failure [Fatal]
  - Unevaluable event [Unknown]

NARRATIVE: CASE EVENT DATE: 20230101
